FAERS Safety Report 7866242-8 (Version None)
Quarter: 2011Q4

REPORT INFORMATION
  Report Type: 
  Country: None (occurrence: None)
  Receive Date: 20111028
  Receipt Date: 20110517
  Transmission Date: 20120403
  Serious: No
  Sender: FDA-Public Use
  Company Number: US-GLAXOSMITHKLINE-A0927600A

PATIENT
  Age: 83 Year
  Sex: Female

DRUGS (15)
  1. CITRACAL [Concomitant]
  2. FISH OIL [Concomitant]
  3. ADVAIR DISKUS 100/50 [Suspect]
     Indication: COUGH
     Dosage: 1PUFF TWICE PER DAY
     Route: 055
     Dates: start: 20110512
  4. ERYTHROMYCIN [Concomitant]
  5. CENTRUM SILVER [Concomitant]
  6. AMILORIDE HYDROCHLORIDE [Concomitant]
  7. ATENOLOL [Concomitant]
  8. ASPIRIN [Concomitant]
  9. SIMVASTATIN [Concomitant]
  10. FUROSEMIDE [Concomitant]
  11. NORVASC [Concomitant]
  12. LORAZEPAM [Concomitant]
  13. LEVOTHYROXINE SODIUM [Concomitant]
  14. KLOR-CON [Concomitant]
  15. FOLIC ACID [Concomitant]

REACTIONS (6)
  - ORAL DISCOMFORT [None]
  - MALAISE [None]
  - DYSPNOEA [None]
  - THROAT IRRITATION [None]
  - COUGH [None]
  - GINGIVAL PAIN [None]
